FAERS Safety Report 13611903 (Version 2)
Quarter: 2017Q2

REPORT INFORMATION
  Report Type: Report from Study
  Country: FR (occurrence: FR)
  Receive Date: 20170605
  Receipt Date: 20170627
  Transmission Date: 20170830
  Serious: Yes (Death, Hospitalization)
  Sender: FDA-Public Use
  Company Number: FR-ROCHE-1941920

PATIENT
  Age: 74 Year
  Sex: Female
  Weight: 65 kg

DRUGS (3)
  1. VEMURAFENIB [Suspect]
     Active Substance: VEMURAFENIB
     Indication: BRAF V600E MUTATION POSITIVE
     Dosage: CUMULATIVE DOSE SINCE FIRST ADMINISTRATION: 57600 MG
     Route: 065
     Dates: start: 20170303
  2. LOVENOX [Concomitant]
     Active Substance: ENOXAPARIN SODIUM
  3. VEMURAFENIB [Suspect]
     Active Substance: VEMURAFENIB
     Indication: LUNG CANCER METASTATIC

REACTIONS (2)
  - General physical health deterioration [Not Recovered/Not Resolved]
  - Mucosal inflammation [Not Recovered/Not Resolved]

NARRATIVE: CASE EVENT DATE: 20170402
